FAERS Safety Report 9388375 (Version 1)
Quarter: 2013Q3

REPORT INFORMATION
  Report Type: Spontaneous
  Country: US (occurrence: US)
  Receive Date: 20130708
  Receipt Date: 20130708
  Transmission Date: 20140515
  Serious: Yes (Other)
  Sender: FDA-Public Use
  Company Number: PHHY2013US070034

PATIENT
  Age: 62 Year
  Sex: Male

DRUGS (1)
  1. ACETYLSALICYLIC ACID [Suspect]
     Route: 048

REACTIONS (3)
  - Paralysis [Not Recovered/Not Resolved]
  - Accident [Unknown]
  - Abdominal discomfort [Not Recovered/Not Resolved]
